FAERS Safety Report 10059905 (Version 1)
Quarter: 2014Q2

REPORT INFORMATION
  Report Type: Report from Study
  Country: US (occurrence: US)
  Receive Date: 20140404
  Receipt Date: 20140404
  Transmission Date: 20141212
  Serious: Yes (Hospitalization)
  Sender: FDA-Public Use
  Company Number: US-GLAXOSMITHKLINE-A1067935A

PATIENT
  Age: 58 Year
  Sex: Female

DRUGS (2)
  1. PAZOPANIB [Suspect]
     Indication: CHOLANGIOCARCINOMA
     Route: 048
     Dates: start: 20140315
  2. TRAMETINIB [Suspect]
     Indication: CHOLANGIOCARCINOMA
     Route: 048
     Dates: start: 20140315

REACTIONS (1)
  - Mental status changes [Not Recovered/Not Resolved]
